FAERS Safety Report 20798248 (Version 2)
Quarter: 2022Q2

REPORT INFORMATION
  Report Type: Spontaneous
  Country: US (occurrence: US)
  Receive Date: 20220507
  Receipt Date: 20220627
  Transmission Date: 20220720
  Serious: No
  Sender: FDA-Public Use
  Company Number: US-SA-SAC20220504000399

PATIENT

DRUGS (1)
  1. CERDELGA [Suspect]
     Active Substance: ELIGLUSTAT
     Indication: Lipidosis
     Dosage: 84 MG, BID
     Route: 048
     Dates: start: 20200212

REACTIONS (1)
  - Product dose omission in error [Unknown]
